FAERS Safety Report 12170608 (Version 7)
Quarter: 2017Q1

REPORT INFORMATION
  Report Type: Spontaneous
  Country: US (occurrence: US)
  Receive Date: 20160311
  Receipt Date: 20170117
  Transmission Date: 20170428
  Serious: Yes (Other)
  Sender: FDA-Public Use
  Company Number: PHEH2016US005801

PATIENT
  Age: 22 Year
  Sex: Female
  Weight: 81.63 kg

DRUGS (3)
  1. ONDANSETRON HYDROCHLORIDE. [Suspect]
     Active Substance: ONDANSETRON HYDROCHLORIDE
     Indication: VOMITING IN PREGNANCY
     Dosage: 4 MG, TID
     Route: 048
  2. ZOFRAN [Suspect]
     Active Substance: ONDANSETRON HYDROCHLORIDE
     Indication: VOMITING IN PREGNANCY
     Dosage: 4 MG, Q8H
     Route: 048
     Dates: start: 20100121, end: 20100124
  3. ONDANSETRON [Suspect]
     Active Substance: ONDANSETRON
     Indication: VOMITING IN PREGNANCY
     Dosage: 4 MG, TID
     Route: 048
     Dates: start: 20100105, end: 20100121

REACTIONS (17)
  - Vaginal discharge [Unknown]
  - Dysplasia [Unknown]
  - Abdominal pain lower [Unknown]
  - Anxiety [Unknown]
  - Lethargy [Unknown]
  - Headache [Unknown]
  - Product use issue [Unknown]
  - Vulvovaginal candidiasis [Unknown]
  - Dysuria [Unknown]
  - Uterine spasm [Unknown]
  - Chest pain [Unknown]
  - Injury [Unknown]
  - Pyrexia [Unknown]
  - Pain [Unknown]
  - Maternal exposure during pregnancy [Unknown]
  - Emotional distress [Unknown]
  - Pollakiuria [Unknown]

NARRATIVE: CASE EVENT DATE: 20100305
